FAERS Safety Report 8191861-1 (Version None)
Quarter: 2012Q1

REPORT INFORMATION
  Report Type: 
  Country: None (occurrence: None)
  Receive Date: 20120307
  Receipt Date: 20120229
  Transmission Date: 20120608
  Serious: Yes (Death, Hospitalization, Other)
  Sender: FDA-Public Use
  Company Number: PHHY2012JP015019

PATIENT
  Age: 73 Year
  Sex: Male

DRUGS (5)
  1. CYCLOSPORINE [Suspect]
     Indication: MYELODYSPLASTIC SYNDROME
     Dosage: 200 MG, DAILY
     Dates: start: 20090101, end: 20100101
  2. BLOOD TRANSFUSION, AUXILIARY PRODUCTS [Concomitant]
     Indication: MYELODYSPLASTIC SYNDROME
     Dosage: ONCE A WEEK
  3. PLATELETS [Concomitant]
     Indication: MYELODYSPLASTIC SYNDROME
     Dosage: ONCE A WEEK
  4. PREDNISOLONE [Concomitant]
     Indication: MYELODYSPLASTIC SYNDROME
     Dosage: 5 MG,DAILY
     Route: 048
     Dates: start: 20090101
  5. RED BLOOD CELLS [Concomitant]
     Indication: MYELODYSPLASTIC SYNDROME

REACTIONS (20)
  - PURPURA [None]
  - PLEURAL EFFUSION [None]
  - METASTASES TO LUNG [None]
  - HAEMOPTYSIS [None]
  - HAEMOTHORAX [None]
  - RESPIRATORY FAILURE [None]
  - PAPULE [None]
  - ULCER [None]
  - DYSPNOEA [None]
  - ANAEMIA [None]
  - HAEMORRHAGIC DIATHESIS [None]
  - ANGIOSARCOMA [None]
  - TRAUMATIC HAEMATOMA [None]
  - HAEMORRHAGE [None]
  - MASS [None]
  - PYREXIA [None]
  - SPUTUM DISCOLOURED [None]
  - EMPHYSEMA [None]
  - RECTAL CANCER [None]
  - PULMONARY ALVEOLAR HAEMORRHAGE [None]
